FAERS Safety Report 5000570-9 (Version None)
Quarter: 2006Q2

REPORT INFORMATION
  Report Type: 
  Country: None (occurrence: None)
  Receive Date: 20060512
  Receipt Date: 20060502
  Transmission Date: 20061013
  Serious: Yes (Hospitalization, Other)
  Sender: FDA-Public Use
  Company Number: GB-ABBOTT-06P-167-0332297-00

PATIENT
  Age: 69 Year
  Sex: Female

DRUGS (2)
  1. CLARITHROMYCIN [Suspect]
     Indication: LOWER RESPIRATORY TRACT INFECTION
  2. WARFARIN SODIUM [Interacting]
     Indication: ATRIAL FIBRILLATION

REACTIONS (7)
  - ABDOMINAL TENDERNESS [None]
  - COUGH [None]
  - DRUG INTERACTION [None]
  - FLANK PAIN [None]
  - HAEMOGLOBIN DECREASED [None]
  - INTERNATIONAL NORMALISED RATIO INCREASED [None]
  - RETROPERITONEAL HAEMATOMA [None]
